FAERS Safety Report 8326359-0 (Version None)
Quarter: 2012Q2

REPORT INFORMATION
  Report Type: 
  Country: None (occurrence: None)
  Receive Date: 20120501
  Receipt Date: 20120420
  Transmission Date: 20120825
  Serious: Yes (Death, Hospitalization, Other)
  Sender: FDA-Public Use
  Company Number: US-ACTELION-A-US2012-60526

PATIENT

DRUGS (2)
  1. TRACLEER [Suspect]
     Indication: PULMONARY ARTERIAL HYPERTENSION
     Dosage: UNK MG, UNK
     Route: 048
     Dates: start: 20100816, end: 20120401
  2. COUMADIN [Concomitant]

REACTIONS (4)
  - PULMONARY OEDEMA [None]
  - PNEUMONIA [None]
  - PULMONARY EMBOLISM [None]
  - PULMONARY FIBROSIS [None]
